FAERS Safety Report 7770665-5 (Version None)
Quarter: 2011Q3

REPORT INFORMATION
  Report Type: 
  Country: None (occurrence: None)
  Receive Date: 20110922
  Receipt Date: 20110920
  Transmission Date: 20111222
  Serious: Yes (Death, Life-Threatening, Hospitalization)
  Sender: FDA-Public Use
  Company Number: BR-B.I. PHARMACEUTICALS,INC./RIDGEFIELD-2011-BR-00931BR

PATIENT
  Sex: Female

DRUGS (1)
  1. MICARDIS [Suspect]
     Indication: HYPERTENSION
     Dosage: 160 MG
     Route: 048
     Dates: end: 20110824

REACTIONS (8)
  - ARRHYTHMIA [None]
  - BLOOD PRESSURE INCREASED [None]
  - INFECTION [None]
  - FALL [None]
  - HUMERUS FRACTURE [None]
  - LACERATION [None]
  - DYSPNOEA [None]
  - PNEUMONIA [None]
